FAERS Safety Report 6568387-1 (Version None)
Quarter: 2010Q1

REPORT INFORMATION
  Report Type: 
  Country: None (occurrence: None)
  Receive Date: 20100128
  Receipt Date: 20100120
  Transmission Date: 20100710
  Serious: Yes (Death)
  Sender: FDA-Public Use
  Company Number: 10-000123

PATIENT
  Age: 48 Year
  Sex: Female

DRUGS (4)
  1. DORYX [Suspect]
     Indication: CHLAMYDIAL INFECTION
     Dosage: FOR TEN DAYS, ORAL
     Route: 048
  2. DORYX [Suspect]
     Indication: DERMATOMYOSITIS
     Dosage: FOR TEN DAYS, ORAL
     Route: 048
  3. PREDNISONE TAB [Suspect]
     Indication: CHLAMYDIAL INFECTION
     Dosage: FOR TWO WEEKS, ORAL
     Route: 048
  4. PREDNISONE TAB [Suspect]
     Indication: DERMATOMYOSITIS
     Dosage: FOR TWO WEEKS, ORAL
     Route: 048

REACTIONS (7)
  - ACIDOSIS [None]
  - CARDIAC ARREST [None]
  - CONVULSION [None]
  - HAEMOLYTIC ANAEMIA [None]
  - RENAL FAILURE [None]
  - THROMBOTIC THROMBOCYTOPENIC PURPURA [None]
  - VENTRICULAR ASYSTOLE [None]
